FAERS Safety Report 4809706-3 (Version None)
Quarter: 2005Q4

REPORT INFORMATION
  Report Type: 
  Country: None (occurrence: None)
  Receive Date: 20051021
  Receipt Date: 20050801
  Transmission Date: 20060501
  Serious: Yes (Hospitalization, Other)
  Sender: FDA-Public Use
  Company Number: US_0504116518

PATIENT
  Age: 41 Year
  Sex: Female
  Weight: 86 kg

DRUGS (11)
  1. ZYPREXA [Suspect]
     Indication: SCHIZOPHRENIA
     Dosage: 10 MG
     Dates: start: 20010515
  2. THIOTHIXENE [Concomitant]
  3. RISPERDAL [Concomitant]
  4. SEROQUEL [Concomitant]
  5. LIPRAM [Concomitant]
  6. FERROUS SULFATE TAB [Concomitant]
  7. CIMETIDINE [Concomitant]
  8. DIPHENHYDRAMINE HCL [Concomitant]
  9. ALBUTEROL [Concomitant]
  10. LISINOPRIL [Concomitant]
  11. PANCREASE (PANCRELIPASE) [Concomitant]

REACTIONS (5)
  - ANAEMIA [None]
  - DIABETES MELLITUS [None]
  - UPPER RESPIRATORY TRACT INFECTION [None]
  - VIRAL INFECTION [None]
  - WEIGHT INCREASED [None]
